FAERS Safety Report 13561984 (Version 1)
Quarter: 2017Q2

REPORT INFORMATION
  Report Type: Spontaneous
  Country: IT (occurrence: IT)
  Receive Date: 20170518
  Receipt Date: 20170518
  Transmission Date: 20170830
  Serious: Yes (Other)
  Sender: FDA-Public Use
  Company Number: IT-ROCHE-1933038

PATIENT
  Age: 71 Year
  Sex: Female
  Weight: 55 kg

DRUGS (11)
  1. ZYLORIC [Concomitant]
     Active Substance: ALLOPURINOL
     Dosage: 300 MG TABLETS 30 SCORED TABLETS
     Route: 065
  2. XELODA [Suspect]
     Active Substance: CAPECITABINE
     Indication: ADENOCARCINOMA OF COLON
     Dosage: CYCLICAL
     Route: 048
     Dates: start: 20161031
  3. OXALIPLATIN. [Suspect]
     Active Substance: OXALIPLATIN
     Indication: ADENOCARCINOMA OF COLON
     Dosage: CYCLICAL
     Route: 042
     Dates: start: 20161031
  4. LIBRADIN (ITALY) [Concomitant]
  5. ESKIM [Concomitant]
     Active Substance: OMEGA-3 FATTY ACIDS
  6. DIUREMID (ITALY) [Concomitant]
  7. CARDIOASPIRIN [Concomitant]
     Active Substance: ASPIRIN
  8. GOLTOR [Concomitant]
  9. SOTALEX [Concomitant]
     Active Substance: SOTALOL
  10. LANSOPRAZOLE. [Concomitant]
     Active Substance: LANSOPRAZOLE
     Route: 065
  11. UNIPRIL (ITALY) [Concomitant]
     Dosage: 5 MG TABLETS 14 TABLETS
     Route: 065

REACTIONS (5)
  - Constipation [Recovering/Resolving]
  - Thrombocytopenia [Unknown]
  - Sciatica [Recovering/Resolving]
  - Extravasation [Recovering/Resolving]
  - Neutropenia [Recovering/Resolving]

NARRATIVE: CASE EVENT DATE: 20170120
